FAERS Safety Report 13526444 (Version 1)
Quarter: 2017Q2

REPORT INFORMATION
  Report Type: Spontaneous
  Country: US (occurrence: US)
  Receive Date: 20170509
  Receipt Date: 20170509
  Transmission Date: 20170830
  Serious: Yes (Other)
  Sender: FDA-Public Use
  Company Number: US-BEH-2017080091

PATIENT
  Sex: Female
  Weight: 68.27 kg

DRUGS (16)
  1. BERINERT [Suspect]
     Active Substance: HUMAN C1-ESTERASE INHIBITOR
     Dosage: UNK
     Route: 042
  2. IRON [Concomitant]
     Active Substance: IRON
  3. HEPARIN [Concomitant]
     Active Substance: HEPARIN SODIUM
  4. EPINEPHRINE. [Concomitant]
     Active Substance: EPINEPHRINE
  5. LOVENOX [Concomitant]
     Active Substance: ENOXAPARIN SODIUM
  6. HYDROXYZINE [Concomitant]
     Active Substance: HYDROXYZINE HYDROCHLORIDE
  7. POTASSIUM CHLORIDE. [Concomitant]
     Active Substance: POTASSIUM CHLORIDE
  8. CARAFATE [Concomitant]
     Active Substance: SUCRALFATE
  9. SODIUM CHLORIDE. [Concomitant]
     Active Substance: SODIUM CHLORIDE
  10. AMITRIPTYLINE [Concomitant]
     Active Substance: AMITRIPTYLINE
  11. LANTUS [Concomitant]
     Active Substance: INSULIN GLARGINE
  12. LOPRESSOR [Concomitant]
     Active Substance: METOPROLOL TARTRATE
  13. PROAIR HFA [Concomitant]
     Active Substance: ALBUTEROL SULFATE
  14. BERINERT [Suspect]
     Active Substance: HUMAN C1-ESTERASE INHIBITOR
     Indication: HEREDITARY ANGIOEDEMA
     Dosage: 2000 IU, EVERY 3 DAYS
     Route: 042
     Dates: start: 20170417
  15. TYLENOL WITH CODEINE [Concomitant]
     Active Substance: ACETAMINOPHEN\CODEINE PHOSPHATE
  16. REGLAN [Concomitant]
     Active Substance: METOCLOPRAMIDE HYDROCHLORIDE

REACTIONS (3)
  - Hereditary angioedema [Unknown]
  - Pharyngeal oedema [Unknown]
  - Lip swelling [Unknown]
